FAERS Safety Report 4432878-X (Version None)
Quarter: 2004Q3

REPORT INFORMATION
  Report Type: 
  Country: None (occurrence: None)
  Receive Date: 20040823
  Receipt Date: 20040810
  Transmission Date: 20050211
  Serious: Yes (Life-Threatening)
  Sender: FDA-Public Use
  Company Number: CIP04001775

PATIENT
  Age: 68 Year
  Sex: Female

DRUGS (9)
  1. MACRODANTIN [Suspect]
     Indication: URINARY TRACT DISORDER
     Dosage: 100 MG DAILY, ORAL
     Route: 048
     Dates: start: 20030902, end: 20030910
  2. FOSAMAX [Concomitant]
  3. CALTRATE [Concomitant]
  4. ANPEC [Concomitant]
  5. ALPRIM (TRIMETHOPRIM) [Concomitant]
  6. TETRABENAZINE [Concomitant]
  7. VITAMIN C [Concomitant]
  8. FEVERFEW (HERBAL EXTRACTS NOS) [Concomitant]
  9. PROBIOTICA (LACTOBACILLUS REUTERI) [Concomitant]

REACTIONS (9)
  - ARTHRALGIA [None]
  - DEHYDRATION [None]
  - EPISTAXIS [None]
  - FATIGUE [None]
  - HEADACHE [None]
  - HYPERTENSION [None]
  - RASH [None]
  - TREMOR [None]
  - VOMITING [None]
